FAERS Safety Report 22931262 (Version 2)
Quarter: 2023Q4

REPORT INFORMATION
  Report Type: Spontaneous
  Country: CA (occurrence: CA)
  Receive Date: 20230911
  Receipt Date: 20231102
  Transmission Date: 20240110
  Serious: Yes (Other)
  Sender: FDA-Public Use
  Company Number: CA-PFIZER INC-202201329367

PATIENT
  Age: 63 Year
  Sex: Male
  Weight: 112.3 kg

DRUGS (4)
  1. SOMATROPIN [Suspect]
     Active Substance: SOMATROPIN
     Indication: Growth hormone deficiency
     Dosage: 0.3 MG, 1X/DAY
     Route: 058
     Dates: start: 20220308, end: 202211
  2. SOMATROPIN [Suspect]
     Active Substance: SOMATROPIN
     Dosage: 0.4 MG, 1X/DAY, (GOQUICK PEN 5.3MG)
     Route: 058
     Dates: start: 202211
  3. CORTEF [Concomitant]
     Active Substance: HYDROCORTISONE
     Dosage: 10 MG, DAILY (P.O. 3 TIMES DAILY (DECREASED FROM 1D+15+10MG)
     Route: 048
  4. SYNTHROID [Concomitant]
     Active Substance: LEVOTHYROXINE SODIUM
     Dosage: UNK

REACTIONS (28)
  - Encephalomalacia [Unknown]
  - Central hypothyroidism [Unknown]
  - Type 2 diabetes mellitus [Unknown]
  - Diabetes insipidus [Unknown]
  - Drug ineffective [Unknown]
  - Device defective [Unknown]
  - Device mechanical issue [Unknown]
  - Device leakage [Unknown]
  - Incorrect dosage administered [Unknown]
  - Injection site mass [Not Recovered/Not Resolved]
  - Product administered at inappropriate site [Unknown]
  - Thyroxine abnormal [Unknown]
  - Asthenia [Unknown]
  - Insulin-like growth factor increased [Unknown]
  - Fatigue [Not Recovered/Not Resolved]
  - Back pain [Not Recovered/Not Resolved]
  - Depressed mood [Not Recovered/Not Resolved]
  - Nausea [Unknown]
  - Discouragement [Unknown]
  - Visual field defect [Recovering/Resolving]
  - Hypertension [Unknown]
  - Secondary hypogonadism [Unknown]
  - Polycythaemia [Unknown]
  - Memory impairment [Unknown]
  - Cognitive disorder [Unknown]
  - Obstructive sleep apnoea syndrome [Unknown]
  - Bone swelling [Unknown]
  - Loss of personal independence in daily activities [Unknown]

NARRATIVE: CASE EVENT DATE: 20220308
